FAERS Safety Report 5302585-X (Version None)
Quarter: 2007Q2

REPORT INFORMATION
  Report Type: 
  Country: None (occurrence: None)
  Receive Date: 20070419
  Receipt Date: 20070418
  Transmission Date: 20071010
  Serious: Yes (Hospitalization)
  Sender: FDA-Public Use
  Company Number: US-ROXANE LABORATORIES, INC-2007-DE-02220GD

PATIENT
  Age: 72 Year
  Sex: Male

DRUGS (10)
  1. SERTRALINE [Suspect]
     Route: 048
  2. RABEPRAZOLE SODIUM [Suspect]
     Route: 048
  3. ACETAMINOPHEN W/ CODEINE [Concomitant]
     Indication: PAIN
  4. PREDNISONE TAB [Concomitant]
     Route: 048
  5. BETAMETHASONE VALERATE [Concomitant]
     Indication: RASH
     Route: 061
  6. COLESTIPOL HCL [Concomitant]
  7. FUROSEMIDE [Concomitant]
     Route: 048
  8. METOPROLOL SUCCINATE [Concomitant]
     Route: 048
  9. NITROGLYCERIN [Concomitant]
     Dosage: 0.2 MG/H
     Route: 062
  10. SIMVASTATIN [Concomitant]
     Route: 048

REACTIONS (4)
  - APLASIA PURE RED CELL [None]
  - COUGH [None]
  - DYSPNOEA [None]
  - FATIGUE [None]
